FAERS Safety Report 19599495 (Version 2)
Quarter: 2021Q3

REPORT INFORMATION
  Report Type: Report from Study
  Country: US (occurrence: US)
  Receive Date: 20210722
  Receipt Date: 20210812
  Transmission Date: 20211014
  Serious: No
  Sender: FDA-Public Use
  Company Number: US-SA-2021SA238554

PATIENT

DRUGS (2)
  1. NO STUDY DRUG GIVEN MKT [Suspect]
     Active Substance: UNSPECIFIED INGREDIENT
  2. LANTUS [Suspect]
     Active Substance: INSULIN GLARGINE
     Dosage: 50
     Route: 058

REACTIONS (3)
  - Injection site pain [Unknown]
  - Injection site mass [Unknown]
  - Injection site bruising [Unknown]

NARRATIVE: CASE EVENT DATE: 20210710
